FAERS Safety Report 18578130 (Version 2)
Quarter: 2020Q4

REPORT INFORMATION
  Report Type: Spontaneous
  Country: BE (occurrence: BE)
  Receive Date: 20201204
  Receipt Date: 20201223
  Transmission Date: 20210114
  Serious: Yes (Hospitalization, Other)
  Sender: FDA-Public Use
  Company Number: BE-AMGEN-BELSP2020193545

PATIENT

DRUGS (1)
  1. VECTIBIX [Suspect]
     Active Substance: PANITUMUMAB
     Indication: PRODUCT USED FOR UNKNOWN INDICATION
     Dosage: UNK
     Route: 065

REACTIONS (14)
  - Arthralgia [Unknown]
  - Unevaluable event [Unknown]
  - Decreased appetite [Unknown]
  - Pain [Unknown]
  - Insomnia [Unknown]
  - Alopecia [Unknown]
  - Dyspnoea [Unknown]
  - Disease progression [Unknown]
  - Myalgia [Unknown]
  - Diarrhoea [Unknown]
  - Rash [Unknown]
  - Skin reaction [Unknown]
  - Fatigue [Unknown]
  - Stomatitis [Unknown]
